FAERS Safety Report 7961081-1 (Version None)
Quarter: 2011Q4

REPORT INFORMATION
  Report Type: 
  Country: None (occurrence: None)
  Receive Date: 20111201
  Receipt Date: 20111201
  Transmission Date: 20120403
  Serious: No
  Sender: FDA-Public Use
  Company Number: None

PATIENT
  Sex: Male
  Weight: 63.6 kg

DRUGS (1)
  1. AMPYRA [Suspect]
     Indication: MULTIPLE SCLEROSIS
     Dosage: 1 TAB TWICE DAILY (BY MOUTH) 047
     Route: 048
     Dates: start: 20110924, end: 20110930

REACTIONS (2)
  - DIZZINESS [None]
  - GAIT DISTURBANCE [None]
